FAERS Safety Report 9189138 (Version 1)
Quarter: 2013Q1

REPORT INFORMATION
  Report Type: Spontaneous
  Country: BR (occurrence: BR)
  Receive Date: 20130326
  Receipt Date: 20130326
  Transmission Date: 20140127
  Serious: Yes (Hospitalization, Other)
  Sender: FDA-Public Use
  Company Number: BR-009507513-1303BRA012007

PATIENT
  Age: 52 None
  Sex: Male
  Weight: 65 kg

DRUGS (7)
  1. COPPERTONE SPORT DRY [Suspect]
     Indication: PROPHYLAXIS
     Dosage: UNK, UNKNOWN
     Route: 061
     Dates: start: 2009
  2. COPPERTONE SPORT DRY [Suspect]
     Dosage: UNK, UNKNOWN
     Route: 061
     Dates: start: 20130302
  3. COPPERTONE SPORT DRY [Suspect]
     Dosage: UNK, UNKNOWN
     Route: 061
     Dates: start: 201303
  4. CRESTOR [Concomitant]
     Indication: BLOOD CHOLESTEROL INCREASED
     Dosage: 10 MG, QD
     Route: 065
     Dates: start: 2006
  5. SOMALGIN [Concomitant]
     Indication: BLOOD DISORDER
     Dosage: 200 MG, QD
     Route: 065
     Dates: start: 1998
  6. MONOCORDIL [Concomitant]
     Indication: ISCHAEMIC HEART DISEASE PROPHYLAXIS
     Dosage: 20 MG, BID
     Route: 065
     Dates: start: 2006
  7. SELO-ZOK [Concomitant]
     Indication: ANGINA PECTORIS
     Dosage: 25 MG, QD
     Route: 065
     Dates: start: 2006

REACTIONS (5)
  - Cardiac operation [Recovered/Resolved]
  - Stent placement [Recovered/Resolved]
  - Arterial occlusive disease [Unknown]
  - Eye irritation [Recovered/Resolved]
  - Product quality issue [None]
